FAERS Safety Report 6014668-X (Version None)
Quarter: 2008Q4

REPORT INFORMATION
  Report Type: 
  Country: None (occurrence: None)
  Receive Date: 20081219
  Receipt Date: 20081103
  Transmission Date: 20090506
  Serious: No
  Sender: FDA-Public Use
  Company Number: A0754600A

PATIENT

DRUGS (1)
  1. AVODART [Suspect]
     Route: 048

REACTIONS (1)
  - URINARY INCONTINENCE [None]
